FAERS Safety Report 5074420-9 (Version None)
Quarter: 2006Q3

REPORT INFORMATION
  Report Type: 
  Country: None (occurrence: None)
  Receive Date: 20060803
  Receipt Date: 20060720
  Transmission Date: 20061208
  Serious: Yes (Life-Threatening)
  Sender: FDA-Public Use
  Company Number: 2006-145631-NL

PATIENT
  Age: 65 Year
  Sex: Female

DRUGS (3)
  1. VECURONIUM BROMIDE [Suspect]
     Indication: ANAESTHESIA
     Dosage: 10 MG ONCE INTRAVENOUS (NOS)
     Route: 042
     Dates: start: 20060213, end: 20060213
  2. FENTANYL [Suspect]
     Indication: ANAESTHESIA
     Dosage: 100 MG ONCE INTRAVENOUS (NOS)
     Route: 042
     Dates: start: 20060213, end: 20060213
  3. PROPOFOL [Suspect]
     Indication: ANAESTHESIA
     Dates: start: 20060213, end: 20060213

REACTIONS (2)
  - HYPOTENSION [None]
  - RASH ERYTHEMATOUS [None]
